FAERS Safety Report 5287158-X (Version None)
Quarter: 2007Q2

REPORT INFORMATION
  Report Type: 
  Country: None (occurrence: None)
  Receive Date: 20070404
  Receipt Date: 20070326
  Transmission Date: 20071010
  Serious: Yes (Hospitalization)
  Sender: FDA-Public Use
  Company Number: IT-PFIZER INC-2007020190

PATIENT
  Age: 40 Year
  Sex: Male

DRUGS (4)
  1. SU-011,248 [Suspect]
     Indication: METASTASIS
  2. CORTISONE ACETATE [Concomitant]
  3. ALL OTHER THERAPEUTIC PRODUCTS [Concomitant]
  4. LYRICA [Concomitant]

REACTIONS (2)
  - DEEP VEIN THROMBOSIS [None]
  - FISTULA [None]
